FAERS Safety Report 8070917-8 (Version None)
Quarter: 2012Q1

REPORT INFORMATION
  Report Type: 
  Country: None (occurrence: None)
  Receive Date: 20120125
  Receipt Date: 20120119
  Transmission Date: 20120608
  Serious: Yes (Hospitalization, Other)
  Sender: FDA-Public Use
  Company Number: US-PFIZER INC-2012016451

PATIENT
  Sex: Female
  Weight: 41.723 kg

DRUGS (2)
  1. QUETIAPINE FUMARATE [Suspect]
     Indication: MENTAL DISORDER
     Dosage: UNK
     Dates: end: 20120113
  2. PRISTIQ [Suspect]
     Indication: DEPRESSION
     Dosage: 50 MG, DAILY
     Dates: start: 20111201, end: 20120113

REACTIONS (1)
  - CONVULSION [None]
